FAERS Safety Report 8300232-6 (Version None)
Quarter: 2012Q2

REPORT INFORMATION
  Report Type: 
  Country: None (occurrence: None)
  Receive Date: 20120420
  Receipt Date: 20120418
  Transmission Date: 20120825
  Serious: Yes (Other)
  Sender: FDA-Public Use
  Company Number: AU-PFIZER INC-2012097686

PATIENT

DRUGS (1)
  1. VARENICLINE TARTRATE [Suspect]
     Dosage: UNK

REACTIONS (4)
  - MOOD SWINGS [None]
  - HALLUCINATION [None]
  - MUSCLE TWITCHING [None]
  - INSOMNIA [None]
